FAERS Safety Report 5694388-1 (Version None)
Quarter: 2008Q2

REPORT INFORMATION
  Report Type: 
  Country: None (occurrence: None)
  Receive Date: 20080402
  Receipt Date: 20080317
  Transmission Date: 20081010
  Serious: Yes (Other)
  Sender: FDA-Public Use
  Company Number: 8031117

PATIENT
  Age: 53 Year
  Sex: Male

DRUGS (2)
  1. KEPPRA [Suspect]
     Dosage: 1 G 2/D
  2. VALPROATE SODIUM [Concomitant]

REACTIONS (3)
  - BRADYCARDIA [None]
  - FALL [None]
  - PANCYTOPENIA [None]
